FAERS Safety Report 9031721 (Version 1)
Quarter: 2013Q1

REPORT INFORMATION
  Report Type: Spontaneous
  Country: US (occurrence: US)
  Receive Date: 20130124
  Receipt Date: 20130124
  Transmission Date: 20140127
  Serious: Yes (Hospitalization, Other)
  Sender: FDA-Public Use
  Company Number: US-TEVA-382250USA

PATIENT
  Age: 86 Year
  Sex: Female

DRUGS (1)
  1. FLECAINIDE [Suspect]
     Indication: ATRIAL FIBRILLATION
     Route: 065

REACTIONS (2)
  - Electrocardiogram abnormal [Recovered/Resolved]
  - Toxicity to various agents [Unknown]
